FAERS Safety Report 7716428-8 (Version None)
Quarter: 2011Q3

REPORT INFORMATION
  Report Type: 
  Country: None (occurrence: None)
  Receive Date: 20110829
  Receipt Date: 20110822
  Transmission Date: 20111222
  Serious: Yes (Disabling, Other)
  Sender: FDA-Public Use
  Company Number: PHHY2011GB74966

PATIENT
  Age: 63 Year
  Sex: Female
  Weight: 35 kg

DRUGS (8)
  1. DOXAZOSIN MESYLATE [Concomitant]
  2. RABEPRAZOLE SODIUM [Concomitant]
  3. RAMIPRIL [Concomitant]
  4. FLUTICASONE W/SALMETEROL [Concomitant]
  5. CALCICHEW D3 [Concomitant]
  6. ALENDRONIC ACID [Suspect]
     Indication: OSTEOPOROSIS
     Dosage: 70 MG, QW
     Route: 048
     Dates: start: 20081217, end: 20110804
  7. AMLODIPINE [Concomitant]
  8. TIOTROPIUM BROMIDE [Concomitant]

REACTIONS (3)
  - OSTEONECROSIS [None]
  - ORAL DISCHARGE [None]
  - JAW FRACTURE [None]
